FAERS Safety Report 9350506 (Version 1)
Quarter: 2013Q2

REPORT INFORMATION
  Report Type: Spontaneous
  Country: US (occurrence: None)
  Receive Date: 20130613
  Receipt Date: 20130613
  Transmission Date: 20140414
  Serious: No
  Sender: FDA-Public Use
  Company Number: None

PATIENT
  Age: 82 Year
  Sex: Female
  Weight: 37 kg

DRUGS (7)
  1. CARBOPLATIN [Suspect]
  2. PACLITAXEL (TAXOL) [Suspect]
  3. PEGFILGRASTIM (NEULASTA) [Suspect]
  4. TUMS [Concomitant]
  5. OXYCODONE [Concomitant]
  6. OXYCONTIN [Concomitant]
  7. PRILOSEC [Concomitant]

REACTIONS (7)
  - Mental status changes [None]
  - Pneumonia [None]
  - Culture urine positive [None]
  - Streptococcus test positive [None]
  - Urinary tract infection [None]
  - Activities of daily living impaired [None]
  - Confusional state [None]
